FAERS Safety Report 18637526 (Version 2)
Quarter: 2021Q1

REPORT INFORMATION
  Report Type: Spontaneous
  Country: FR (occurrence: FR)
  Receive Date: 20201218
  Receipt Date: 20210315
  Transmission Date: 20210419
  Serious: Yes (Death, Life-Threatening, Hospitalization, Other)
  Sender: FDA-Public Use
  Company Number: FR-MYLANLABS-2020M1102667

PATIENT
  Age: 26 Year
  Sex: Female

DRUGS (15)
  1. CEFOTAXIME [Suspect]
     Active Substance: CEFOTAXIME SODIUM
     Indication: ANTIBIOTIC PROPHYLAXIS
     Dosage: UNK
  2. MESALAZINE [Suspect]
     Active Substance: MESALAMINE
     Indication: IMMUNOSUPPRESSANT DRUG THERAPY
  3. AZATHIOPRINE. [Suspect]
     Active Substance: AZATHIOPRINE
     Indication: IMMUNOSUPPRESSANT DRUG THERAPY
  4. GANCICLOVIR. [Suspect]
     Active Substance: GANCICLOVIR
     Indication: DISSEMINATED CYTOMEGALOVIRAL INFECTION
     Dosage: UNK
  5. GANCICLOVIR. [Suspect]
     Active Substance: GANCICLOVIR
     Indication: ENCEPHALITIS CYTOMEGALOVIRUS
  6. COTRIMOXAZOLE [Suspect]
     Active Substance: SULFAMETHOXAZOLE\TRIMETHOPRIM
     Indication: ENCEPHALITIS CYTOMEGALOVIRUS
  7. MESALAZINE [Suspect]
     Active Substance: MESALAMINE
     Indication: ENTEROCOLITIS HAEMORRHAGIC
  8. FOSCAVIR [Suspect]
     Active Substance: FOSCARNET SODIUM
     Indication: ENCEPHALITIS CYTOMEGALOVIRUS
  9. AZATHIOPRINE. [Suspect]
     Active Substance: AZATHIOPRINE
     Indication: ENTEROCOLITIS HAEMORRHAGIC
     Dosage: UNK
  10. CEFOTAXIME [Suspect]
     Active Substance: CEFOTAXIME SODIUM
     Indication: ENCEPHALITIS CYTOMEGALOVIRUS
  11. VALACICLOVIR [Suspect]
     Active Substance: VALACYCLOVIR HYDROCHLORIDE
     Indication: ANTIVIRAL PROPHYLAXIS
     Dosage: UNK
  12. AZATHIOPRINE. [Suspect]
     Active Substance: AZATHIOPRINE
     Indication: COLITIS
  13. MESALAZINE [Suspect]
     Active Substance: MESALAMINE
     Indication: COLITIS
     Dosage: UNK
  14. COTRIMOXAZOLE [Suspect]
     Active Substance: SULFAMETHOXAZOLE\TRIMETHOPRIM
     Indication: ANTIBIOTIC PROPHYLAXIS
     Dosage: UNK
  15. FOSCAVIR [Suspect]
     Active Substance: FOSCARNET SODIUM
     Indication: DISSEMINATED CYTOMEGALOVIRAL INFECTION
     Dosage: UNK

REACTIONS (15)
  - Central nervous system necrosis [Unknown]
  - Cerebral venous thrombosis [Unknown]
  - Live birth [Recovered/Resolved]
  - Neurological decompensation [Unknown]
  - Hydrocephalus [Unknown]
  - Cerebral haemorrhage [Unknown]
  - Encephalitis cytomegalovirus [Fatal]
  - Hemiparesis [Unknown]
  - Headache [Unknown]
  - Brain death [Fatal]
  - Exposure during pregnancy [Fatal]
  - Brain oedema [Unknown]
  - Condition aggravated [Unknown]
  - Disseminated cytomegaloviral infection [Unknown]
  - Intracranial pressure increased [Unknown]
